FAERS Safety Report 10385023 (Version 1)
Quarter: 2014Q3

REPORT INFORMATION
  Report Type: Spontaneous
  Country: JP (occurrence: JP)
  Receive Date: 20140814
  Receipt Date: 20140814
  Transmission Date: 20150326
  Serious: Yes (Other)
  Sender: FDA-Public Use
  Company Number: PHHY2011JP122011

PATIENT
  Age: 71 Year
  Sex: Female

DRUGS (3)
  1. GLIVEC [Suspect]
     Active Substance: IMATINIB MESYLATE
     Indication: CHRONIC MYELOID LEUKAEMIA
     Dosage: 200 MG, DAILY
     Dates: start: 20050118, end: 201102
  2. GLIVEC [Suspect]
     Active Substance: IMATINIB MESYLATE
  3. GLIVEC [Suspect]
     Active Substance: IMATINIB MESYLATE
     Dates: start: 201105

REACTIONS (5)
  - Second primary malignancy [Unknown]
  - Anaemia [Unknown]
  - Colon cancer [Unknown]
  - Pseudomyxoma peritonei [Unknown]
  - Platelet count decreased [Unknown]
